FAERS Safety Report 13314767 (Version 1)
Quarter: 2017Q1

REPORT INFORMATION
  Report Type: Spontaneous
  Country: US (occurrence: US)
  Receive Date: 20170309
  Receipt Date: 20170309
  Transmission Date: 20170428
  Serious: No
  Sender: FDA-Public Use
  Company Number: US-ALK ABELLO INC-1064083

PATIENT
  Sex: Male

DRUGS (2)
  1. STERILE DILUENT FOR ALLERGENIC EXTRACT NOS [Suspect]
     Active Substance: ALBUMIN HUMAN OR GLYCERIN OR PHENOL
  2. ALLERGY IMMUNOTHERAPY WITH UNKNOWN EXTRACTS [Concomitant]
     Active Substance: ALLERGENIC EXTRACTS

REACTIONS (6)
  - Local swelling [None]
  - Rash [None]
  - Myalgia [None]
  - Feeling abnormal [None]
  - Malaise [None]
  - Injection site swelling [None]
